FAERS Safety Report 24357152 (Version 2)
Quarter: 2024Q4

REPORT INFORMATION
  Report Type: Spontaneous
  Country: US (occurrence: US)
  Receive Date: 20240924
  Receipt Date: 20241021
  Transmission Date: 20250114
  Serious: Yes (Hospitalization, Other)
  Sender: MYLAN
  Company Number: US-MYLANLABS-2024M1085033

PATIENT
  Age: 82 Year
  Sex: Male

DRUGS (10)
  1. KETOROLAC [Suspect]
     Active Substance: KETOROLAC TROMETHAMINE
     Indication: Cystoid macular oedema
     Dosage: UNK UNK, Q4H, SIX TIMES DAILY
     Route: 061
  2. PREDNISOLONE [Suspect]
     Active Substance: PREDNISOLONE
     Indication: Cystoid macular oedema
     Dosage: UNK, Q6H, FOUR TIMES DAILY
     Route: 061
  3. TRIAMCINOLONE [Interacting]
     Active Substance: TRIAMCINOLONE
     Indication: Cystoid macular oedema
     Dosage: 20 MILLIGRAM, IN EACH EYE
     Route: 031
  4. AMIODARONE [Interacting]
     Active Substance: AMIODARONE
     Indication: Hypertension
     Dosage: UNK
     Route: 065
  5. AMIODARONE [Interacting]
     Active Substance: AMIODARONE
     Indication: Cardiac failure congestive
  6. DARUNAVIR [Interacting]
     Active Substance: DARUNAVIR
     Indication: HIV infection
     Dosage: UNK
     Route: 065
  7. RITONAVIR [Interacting]
     Active Substance: RITONAVIR
     Indication: HIV infection
     Dosage: UNK
     Route: 065
  8. FUROSEMIDE [Concomitant]
     Active Substance: FUROSEMIDE
     Indication: Hypertension
     Dosage: UNK
     Route: 065
  9. FUROSEMIDE [Concomitant]
     Active Substance: FUROSEMIDE
     Indication: Cardiac failure congestive
  10. INSULIN NOS [Concomitant]
     Active Substance: INSULIN NOS
     Indication: Type 1 diabetes mellitus
     Dosage: UNK
     Route: 065

REACTIONS (4)
  - Cushing^s syndrome [Recovered/Resolved]
  - Drug interaction [Recovered/Resolved]
  - Drug ineffective [Unknown]
  - Off label use [Unknown]
